FAERS Safety Report 9260787 (Version 3)
Quarter: 2020Q1

REPORT INFORMATION
  Report Type: Spontaneous
  Country: DK (occurrence: DK)
  Receive Date: 20130429
  Receipt Date: 20200128
  Transmission Date: 20200409
  Serious: No
  Sender: FDA-Public Use
  Company Number: DK-MYLANLABS-2013S1008509

PATIENT
  Sex: Male

DRUGS (10)
  1. RISPERDAL [Suspect]
     Active Substance: RISPERIDONE
     Indication: PRODUCT USED FOR UNKNOWN INDICATION
     Dosage: UNK
     Dates: end: 2013
  2. SEROQUEL [Suspect]
     Active Substance: QUETIAPINE FUMARATE
     Indication: MENTAL DISORDER
     Dosage: 500 MILLIGRAM
     Route: 048
     Dates: start: 20050310
  3. DELEPSINE [Concomitant]
     Active Substance: VALPROATE SODIUM
     Indication: MANIA
     Dosage: DOSIS: 2,5 ML MORGEN OG 4 ML AFTEN.STYRKE: 200 MG/ML.
     Route: 048
     Dates: start: 20150202, end: 20170614
  4. ESCITALOPRAM [Concomitant]
     Active Substance: ESCITALOPRAM OXALATE
     Indication: PRODUCT USED FOR UNKNOWN INDICATION
     Dosage: UNK
  5. DELEPSINE [Concomitant]
     Active Substance: VALPROATE SODIUM
     Dosage: DOSIS: 2,5 ML MORGEN OG 4 ML AFTEN.STYRKE: 200 MG/ML.
     Route: 048
     Dates: start: 20150717
  6. ABILIFY [Concomitant]
     Active Substance: ARIPIPRAZOLE
     Dosage: UNK
     Dates: start: 2014
  7. ZELDOX [Suspect]
     Active Substance: ZIPRASIDONE
     Indication: MENTAL DISORDER
     Dosage: STYRKE: 20 MG
     Route: 048
     Dates: start: 2010, end: 2013
  8. CLOZAPIN HEXAL [Suspect]
     Active Substance: CLOZAPINE
     Indication: PSYCHOTIC DISORDER
     Dosage: DOSIS: TIDLIGERE 350 MG, 15FEB-14SEP2017 250 MG X 1 DGL, FRA 14SEP2017 200 MG X 1 DGL
     Route: 048
  9. ZYPREXA [Suspect]
     Active Substance: OLANZAPINE
     Indication: PRODUCT USED FOR UNKNOWN INDICATION
     Dosage: UNK
  10. ABILIFY [Concomitant]
     Active Substance: ARIPIPRAZOLE
     Indication: PRODUCT USED FOR UNKNOWN INDICATION
     Dosage: UNK

REACTIONS (4)
  - Homosexuality [Not Recovered/Not Resolved]
  - Sperm concentration decreased [Not Recovered/Not Resolved]
  - Feminisation acquired [Not Recovered/Not Resolved]
  - Erectile dysfunction [Not Recovered/Not Resolved]
